FAERS Safety Report 5108199-9 (Version None)
Quarter: 2006Q3

REPORT INFORMATION
  Report Type: 
  Country: None (occurrence: None)
  Receive Date: 20060919
  Receipt Date: 20060830
  Transmission Date: 20061208
  Serious: Yes (Hospitalization)
  Sender: FDA-Public Use
  Company Number: JP-BRISTOL-MYERS SQUIBB COMPANY-13500590

PATIENT
  Age: 30 Year
  Sex: Female

DRUGS (10)
  1. ARIPIPRAZOLE [Suspect]
     Indication: SCHIZOPHRENIA
     Route: 048
     Dates: start: 20060815, end: 20060830
  2. RISPERIDONE [Concomitant]
     Indication: SCHIZOPHRENIA
     Route: 048
     Dates: start: 19990401
  3. PROPERICIAZINE [Concomitant]
     Route: 048
     Dates: start: 20041209
  4. HALOPERIDOL [Concomitant]
     Indication: SCHIZOPHRENIA
     Route: 048
     Dates: start: 20040114
  5. PROMETHAZINE [Concomitant]
     Indication: PARKINSONISM
     Route: 048
     Dates: start: 19990415
  6. BEZAFIBRATE [Concomitant]
     Indication: HYPERLIPIDAEMIA
     Route: 048
     Dates: start: 20050125
  7. CANDESARTAN CILEXETIL [Concomitant]
     Indication: AFFECT LABILITY
     Route: 048
     Dates: start: 20041221
  8. VALPROATE SODIUM [Concomitant]
     Route: 048
  9. BIPERIDEN HYDROCHLORIDE TAB [Concomitant]
     Indication: PARKINSONISM
     Route: 048
     Dates: start: 20040108
  10. CHLORPROMAZINE HCL [Concomitant]
     Indication: SCHIZOPHRENIA
     Route: 048
     Dates: start: 20031116

REACTIONS (1)
  - DIABETIC KETOACIDOSIS [None]
